FAERS Safety Report 26092138 (Version 1)
Quarter: 2025Q4

REPORT INFORMATION
  Report Type: Spontaneous
  Country: CA (occurrence: CA)
  Receive Date: 20251126
  Receipt Date: 20251126
  Transmission Date: 20260118
  Serious: Yes (Life-Threatening, Hospitalization, Disabling, Other)
  Sender: BRISTOL-MYERS SQUIBB COMPANY
  Company Number: CA-BRISTOL-MYERS SQUIBB COMPANY-2025-154492

PATIENT
  Age: 40 Year
  Sex: Female
  Weight: 96 kg

DRUGS (124)
  1. TRIAMCINOLONE ACETONIDE [Suspect]
     Active Substance: TRIAMCINOLONE ACETONIDE
     Indication: Rheumatoid arthritis
     Route: 014
  2. TRIAMCINOLONE ACETONIDE [Suspect]
     Active Substance: TRIAMCINOLONE ACETONIDE
     Route: 014
  3. TRIAMCINOLONE ACETONIDE [Suspect]
     Active Substance: TRIAMCINOLONE ACETONIDE
     Route: 013
  4. TRIAMCINOLONE ACETONIDE [Suspect]
     Active Substance: TRIAMCINOLONE ACETONIDE
  5. ACETAMINOPHEN [Concomitant]
     Active Substance: ACETAMINOPHEN
     Indication: Rheumatoid arthritis
  6. ACETAMINOPHEN [Concomitant]
     Active Substance: ACETAMINOPHEN
  7. ACETAMINOPHEN [Concomitant]
     Active Substance: ACETAMINOPHEN
  8. ACETAMINOPHEN [Concomitant]
     Active Substance: ACETAMINOPHEN
     Route: 058
  9. AIMOVIG [Concomitant]
     Active Substance: ERENUMAB-AOOE
     Indication: Migraine
  10. AIMOVIG [Concomitant]
     Active Substance: ERENUMAB-AOOE
  11. ALENDRONIC ACID [Concomitant]
     Active Substance: ALENDRONIC ACID
     Indication: Rheumatoid arthritis
  12. ALENDRONIC ACID [Concomitant]
     Active Substance: ALENDRONIC ACID
     Route: 048
  13. ALENDRONIC ACID [Concomitant]
     Active Substance: ALENDRONIC ACID
     Route: 016
  14. ALENDRONIC ACID [Concomitant]
     Active Substance: ALENDRONIC ACID
  15. ALENDRONIC ACID [Concomitant]
     Active Substance: ALENDRONIC ACID
     Route: 048
  16. BOTULINUM TOXIN TYPE A [Concomitant]
     Active Substance: BOTULINUM TOXIN TYPE A
     Indication: Product used for unknown indication
     Dosage: POWDER FOR SOLUTION
  17. BUTRANS [Concomitant]
     Active Substance: BUPRENORPHINE
     Indication: Product used for unknown indication
  18. CALCIUM CARBONATE [Concomitant]
     Active Substance: CALCIUM CARBONATE
     Indication: Product used for unknown indication
  19. CANDESARTAN [Concomitant]
     Active Substance: CANDESARTAN
     Indication: Migraine
     Route: 048
  20. CETIRIZINE [Concomitant]
     Active Substance: CETIRIZINE HYDROCHLORIDE
     Indication: Rheumatoid arthritis
  21. CETIRIZINE [Concomitant]
     Active Substance: CETIRIZINE HYDROCHLORIDE
     Indication: Off label use
     Route: 048
  22. CETIRIZINE [Concomitant]
     Active Substance: CETIRIZINE HYDROCHLORIDE
     Route: 048
  23. CETIRIZINE HYDROCHLORIDE [Concomitant]
     Active Substance: CETIRIZINE HYDROCHLORIDE
     Indication: Rheumatoid arthritis
  24. COD LIVER OIL [Concomitant]
     Active Substance: COD LIVER OIL
     Indication: Product used for unknown indication
  25. COSENTYX [Concomitant]
     Active Substance: SECUKINUMAB
     Indication: Rheumatoid arthritis
  26. COSENTYX [Concomitant]
     Active Substance: SECUKINUMAB
     Indication: Psoriatic arthropathy
  27. COSENTYX [Concomitant]
     Active Substance: SECUKINUMAB
  28. COSENTYX [Concomitant]
     Active Substance: SECUKINUMAB
  29. COSENTYX [Concomitant]
     Active Substance: SECUKINUMAB
     Route: 048
  30. COSENTYX [Concomitant]
     Active Substance: SECUKINUMAB
     Route: 058
  31. DICLOFENAC [Concomitant]
     Active Substance: DICLOFENAC
     Indication: Product used for unknown indication
     Route: 058
  32. DICLOFENAC [Concomitant]
     Active Substance: DICLOFENAC
  33. DICLOFENAC [Concomitant]
     Active Substance: DICLOFENAC
  34. DICLOFENAC DIETHYLAMINE [Concomitant]
     Active Substance: DICLOFENAC DIETHYLAMINE
     Indication: Product used for unknown indication
  35. DICLOFENAC DIETHYLAMINE [Concomitant]
     Active Substance: DICLOFENAC DIETHYLAMINE
     Route: 058
  36. DICLOFENAC SODIUM [Concomitant]
     Active Substance: DICLOFENAC SODIUM
     Indication: Product used for unknown indication
  37. DICLOFENAC SODIUM [Concomitant]
     Active Substance: DICLOFENAC SODIUM
  38. DICLOFENAC SODIUM [Concomitant]
     Active Substance: DICLOFENAC SODIUM
  39. DICLOFENAC SODIUM [Concomitant]
     Active Substance: DICLOFENAC SODIUM
     Route: 058
  40. ERELZI [Concomitant]
     Active Substance: ETANERCEPT-SZZS
     Indication: Rheumatoid arthritis
     Route: 058
  41. ERELZI [Concomitant]
     Active Substance: ETANERCEPT-SZZS
  42. ERELZI [Concomitant]
     Active Substance: ETANERCEPT-SZZS
     Route: 058
  43. ERGOCALCIFEROL [Concomitant]
     Active Substance: ERGOCALCIFEROL
     Indication: Rheumatoid arthritis
  44. ERGOCALCIFEROL [Concomitant]
     Active Substance: ERGOCALCIFEROL
  45. FLUMETHASONE [Concomitant]
     Active Substance: FLUMETHASONE
     Indication: Product used for unknown indication
  46. HYRIMOZ [Concomitant]
     Active Substance: ADALIMUMAB-ADAZ
     Indication: Rheumatoid arthritis
     Route: 058
  47. HYRIMOZ [Concomitant]
     Active Substance: ADALIMUMAB-ADAZ
     Route: 058
  48. HYRIMOZ [Concomitant]
     Active Substance: ADALIMUMAB-ADAZ
     Route: 058
  49. HYRIMOZ [Concomitant]
     Active Substance: ADALIMUMAB-ADAZ
  50. HYRIMOZ [Concomitant]
     Active Substance: ADALIMUMAB-ADAZ
  51. INFLIXIMAB [Concomitant]
     Active Substance: INFLIXIMAB
     Indication: Rheumatoid arthritis
  52. INFLIXIMAB [Concomitant]
     Active Substance: INFLIXIMAB
  53. INFLIXIMAB [Concomitant]
     Active Substance: INFLIXIMAB
     Route: 042
  54. INFLIXIMAB [Concomitant]
     Active Substance: INFLIXIMAB
  55. INFLIXIMAB [Concomitant]
     Active Substance: INFLIXIMAB
  56. INFLIXIMAB [Concomitant]
     Active Substance: INFLIXIMAB
     Route: 042
  57. INFLIXIMAB [Concomitant]
     Active Substance: INFLIXIMAB
     Route: 042
  58. LEVOMILNACIPRAN [Concomitant]
     Active Substance: LEVOMILNACIPRAN
     Indication: Product used for unknown indication
  59. METHOTREXATE [Concomitant]
     Active Substance: METHOTREXATE
     Indication: Rheumatoid arthritis
     Route: 058
  60. METHOTREXATE [Concomitant]
     Active Substance: METHOTREXATE
     Route: 048
  61. METHOTREXATE [Concomitant]
     Active Substance: METHOTREXATE
     Route: 013
  62. METHOTREXATE [Concomitant]
     Active Substance: METHOTREXATE
  63. METHOTREXATE [Concomitant]
     Active Substance: METHOTREXATE
     Route: 048
  64. METHOTREXATE [Concomitant]
     Active Substance: METHOTREXATE
  65. METHOTREXATE [Concomitant]
     Active Substance: METHOTREXATE
  66. METHOTREXATE [Concomitant]
     Active Substance: METHOTREXATE
     Route: 058
  67. METHOTREXATE [Concomitant]
     Active Substance: METHOTREXATE
     Route: 058
  68. METHOTREXATE [Concomitant]
     Active Substance: METHOTREXATE
     Route: 048
  69. METHOTREXATE [Concomitant]
     Active Substance: METHOTREXATE
  70. METHOTREXATE [Concomitant]
     Active Substance: METHOTREXATE
     Route: 016
  71. METHOTREXATE [Concomitant]
     Active Substance: METHOTREXATE
     Route: 048
  72. METHOTREXATE [Concomitant]
     Active Substance: METHOTREXATE
     Route: 013
  73. METHOTREXATE [Concomitant]
     Active Substance: METHOTREXATE
     Route: 048
  74. METHOTREXATE [Concomitant]
     Active Substance: METHOTREXATE
     Route: 058
  75. METHOTREXATE [Concomitant]
     Active Substance: METHOTREXATE
  76. METHOTREXATE [Concomitant]
     Active Substance: METHOTREXATE
     Route: 048
  77. METHOTREXATE [Concomitant]
     Active Substance: METHOTREXATE
     Route: 048
  78. METHOTREXATE [Concomitant]
     Active Substance: METHOTREXATE
     Route: 048
  79. METHOTREXATE [Concomitant]
     Active Substance: METHOTREXATE
     Route: 048
  80. METHOTREXATE [Concomitant]
     Active Substance: METHOTREXATE
     Route: 048
  81. METHOTREXATE [Concomitant]
     Active Substance: METHOTREXATE
     Route: 058
  82. METHOTREXATE [Concomitant]
     Active Substance: METHOTREXATE
     Route: 058
  83. NAPROXEN [Concomitant]
     Active Substance: NAPROXEN
     Indication: Product used for unknown indication
  84. OXYCODONE [Concomitant]
     Active Substance: OXYCODONE
     Indication: Product used for unknown indication
  85. RAMIPRIL [Concomitant]
     Active Substance: RAMIPRIL
     Indication: Rheumatoid arthritis
     Route: 016
  86. RAMIPRIL [Concomitant]
     Active Substance: RAMIPRIL
     Indication: Off label use
  87. RITUXIMAB [Concomitant]
     Active Substance: RITUXIMAB
     Indication: Rheumatoid arthritis
  88. RITUXIMAB [Concomitant]
     Active Substance: RITUXIMAB
  89. RITUXIMAB [Concomitant]
     Active Substance: RITUXIMAB
  90. RITUXIMAB [Concomitant]
     Active Substance: RITUXIMAB
  91. RITUXIMAB [Concomitant]
     Active Substance: RITUXIMAB
     Route: 042
  92. RITUXIMAB [Concomitant]
     Active Substance: RITUXIMAB
  93. RITUXIMAB [Concomitant]
     Active Substance: RITUXIMAB
  94. RITUXIMAB [Concomitant]
     Active Substance: RITUXIMAB
     Route: 019
  95. RITUXIMAB [Concomitant]
     Active Substance: RITUXIMAB
     Route: 058
  96. RITUXIMAB [Concomitant]
     Active Substance: RITUXIMAB
  97. RITUXIMAB [Concomitant]
     Active Substance: RITUXIMAB
  98. RITUXIMAB [Concomitant]
     Active Substance: RITUXIMAB
  99. RITUXIMAB [Concomitant]
     Active Substance: RITUXIMAB
     Route: 042
  100. RITUXIMAB [Concomitant]
     Active Substance: RITUXIMAB
     Route: 042
  101. RITUXIMAB [Concomitant]
     Active Substance: RITUXIMAB
     Route: 016
  102. RITUXIMAB [Concomitant]
     Active Substance: RITUXIMAB
     Route: 040
  103. RITUXIMAB [Concomitant]
     Active Substance: RITUXIMAB
  104. RITUXIMAB [Concomitant]
     Active Substance: RITUXIMAB
     Route: 042
  105. RITUXIMAB [Concomitant]
     Active Substance: RITUXIMAB
     Route: 040
  106. RITUXIMAB [Concomitant]
     Active Substance: RITUXIMAB
  107. RITUXIMAB [Concomitant]
     Active Substance: RITUXIMAB
     Route: 042
  108. RITUXIMAB [Concomitant]
     Active Substance: RITUXIMAB
     Route: 016
  109. RITUXIMAB [Concomitant]
     Active Substance: RITUXIMAB
     Route: 043
  110. RITUXIMAB [Concomitant]
     Active Substance: RITUXIMAB
  111. RITUXIMAB [Concomitant]
     Active Substance: RITUXIMAB
     Route: 042
  112. RITUXIMAB [Concomitant]
     Active Substance: RITUXIMAB
  113. RITUXIMAB [Concomitant]
     Active Substance: RITUXIMAB
     Route: 042
  114. LEFLUNOMIDE [Concomitant]
     Active Substance: LEFLUNOMIDE
     Indication: Rheumatoid arthritis
  115. LEFLUNOMIDE [Concomitant]
     Active Substance: LEFLUNOMIDE
     Route: 048
  116. LEFLUNOMIDE [Concomitant]
     Active Substance: LEFLUNOMIDE
  117. LEFLUNOMIDE [Concomitant]
     Active Substance: LEFLUNOMIDE
  118. LEFLUNOMIDE [Concomitant]
     Active Substance: LEFLUNOMIDE
     Route: 048
  119. LEFLUNOMIDE [Concomitant]
     Active Substance: LEFLUNOMIDE
     Route: 048
  120. LEFLUNOMIDE [Concomitant]
     Active Substance: LEFLUNOMIDE
  121. LEFLUNOMIDE [Concomitant]
     Active Substance: LEFLUNOMIDE
  122. STELARA [Concomitant]
     Active Substance: USTEKINUMAB
     Indication: Rheumatoid arthritis
     Route: 058
  123. TRAMADOL HYDROCHLORIDE [Concomitant]
     Active Substance: TRAMADOL HYDROCHLORIDE
     Indication: Rheumatoid arthritis
  124. VITAMIN D3 [Concomitant]
     Active Substance: CHOLECALCIFEROL

REACTIONS (26)
  - Asthenia [Unknown]
  - Back injury [Unknown]
  - Blepharospasm [Unknown]
  - Blister [Unknown]
  - Breast cancer stage III [Unknown]
  - Depression [Unknown]
  - Dizziness [Unknown]
  - Dry mouth [Unknown]
  - Duodenal ulcer perforation [Unknown]
  - Facet joint syndrome [Unknown]
  - Gait inability [Unknown]
  - Gastrooesophageal reflux disease [Unknown]
  - General physical health deterioration [Unknown]
  - Hand deformity [Unknown]
  - Hypercholesterolaemia [Unknown]
  - Muscular weakness [Unknown]
  - Musculoskeletal stiffness [Unknown]
  - Nasopharyngitis [Unknown]
  - Neck pain [Unknown]
  - Off label use [Unknown]
  - Product label confusion [Unknown]
  - Swelling [Unknown]
  - Synovitis [Unknown]
  - Vomiting [Unknown]
  - Hospitalisation [Unknown]
  - Adverse event [Unknown]
